FAERS Safety Report 25864099 (Version 1)
Quarter: 2025Q3

REPORT INFORMATION
  Report Type: Spontaneous
  Country: IN (occurrence: IN)
  Receive Date: 20250930
  Receipt Date: 20250930
  Transmission Date: 20251021
  Serious: Yes (Hospitalization, Other)
  Sender: AIPING PHARMACEUTICAL
  Company Number: IN-AIPING-2025AILIT00158

PATIENT
  Age: 54 Year
  Sex: Male

DRUGS (2)
  1. LEVETIRACETAM [Suspect]
     Active Substance: LEVETIRACETAM
     Indication: Seizure
     Route: 065
  2. LEVETIRACETAM [Suspect]
     Active Substance: LEVETIRACETAM
     Route: 065

REACTIONS (4)
  - Hallucination, auditory [Recovered/Resolved]
  - Neuropsychological symptoms [Recovered/Resolved]
  - Paranoia [Recovered/Resolved]
  - Anger [Recovered/Resolved]
